FAERS Safety Report 5588650-0 (Version None)
Quarter: 2007Q4

REPORT INFORMATION
  Report Type: 
  Country: None (occurrence: None)
  Receive Date: 20071212
  Receipt Date: 20071022
  Transmission Date: 20080405
  Serious: No
  Sender: FDA-Public Use
  Company Number: 2007RL000473

PATIENT
  Age: 58 Year
  Sex: Male

DRUGS (9)
  1. LOVAZA [Suspect]
     Indication: BLOOD TRIGLYCERIDES INCREASED
     Dosage: 1 GM;BID;PO
     Route: 048
     Dates: start: 20070901
  2. CHROMIUM PICOLINATE [Concomitant]
  3. NIASPAN [Concomitant]
  4. METFORMIN HCL [Concomitant]
  5. SYNTHROID [Concomitant]
  6. PRANDIN /00882701/ [Concomitant]
  7. MULTIVITAMIN /00831701/ [Concomitant]
  8. TRICOR /00499301/ [Concomitant]
  9. ASPIRIN [Concomitant]

REACTIONS (1)
  - MEDICATION RESIDUE [None]
